FAERS Safety Report 6084988-1 (Version None)
Quarter: 2009Q1

REPORT INFORMATION
  Report Type: 
  Country: None (occurrence: None)
  Receive Date: 20090220
  Receipt Date: 20090212
  Transmission Date: 20090719
  Serious: Yes (Hospitalization)
  Sender: FDA-Public Use
  Company Number: US-JNJFOC-20090203620

PATIENT
  Sex: Female
  Weight: 63 kg

DRUGS (15)
  1. ULTRAM [Suspect]
     Indication: DRUG USE FOR UNKNOWN INDICATION
     Route: 048
  2. REBIF [Concomitant]
     Indication: MULTIPLE SCLEROSIS
     Route: 058
  3. CYMBALTA [Concomitant]
     Indication: ANXIETY
     Route: 048
  4. CYMBALTA [Concomitant]
     Indication: DEPRESSION
     Route: 048
  5. BACLOFEN [Concomitant]
     Indication: MUSCLE SPASMS
  6. ACTONEL [Concomitant]
     Indication: OSTEOPOROSIS PROPHYLAXIS
  7. AXERT [Concomitant]
     Indication: MIGRAINE
  8. XANAX [Concomitant]
     Indication: PANIC ATTACK
  9. LIPITOR [Concomitant]
     Indication: BLOOD CHOLESTEROL INCREASED
     Route: 048
  10. PRILOSEC [Concomitant]
     Indication: GASTROOESOPHAGEAL REFLUX DISEASE
  11. SOMA [Concomitant]
     Indication: SLEEP DISORDER THERAPY
  12. DETROL LA [Concomitant]
     Indication: BLADDER DISORDER
  13. PHENOBARBITAL [Concomitant]
     Indication: CONVULSION
     Route: 048
  14. OPANA ER [Concomitant]
     Indication: PAIN
  15. VOLTAREN-XR [Concomitant]
     Indication: ARTHRITIS
     Route: 048

REACTIONS (8)
  - CHEST PAIN [None]
  - CONSTIPATION [None]
  - DIZZINESS [None]
  - GASTROOESOPHAGEAL SPHINCTER INSUFFICIENCY [None]
  - INFLUENZA LIKE ILLNESS [None]
  - NAUSEA [None]
  - OXYGEN SATURATION DECREASED [None]
  - VOMITING [None]
